FAERS Safety Report 23954324 (Version 1)
Quarter: 2024Q2

REPORT INFORMATION
  Report Type: Other
  Country: US (occurrence: None)
  Receive Date: 20240609
  Receipt Date: 20240609
  Transmission Date: 20240716
  Serious: No
  Sender: FDA-Public Use
  Company Number: US-ROCHE-3466651

PATIENT
  Age: 67 Year
  Sex: Male

DRUGS (3)
  1. ATEZOLIZUMAB [Suspect]
     Active Substance: ATEZOLIZUMAB
     Indication: Squamous cell carcinoma of lung
     Route: 065
  2. CISPLATIN [Concomitant]
     Active Substance: CISPLATIN
  3. TAXOTERE [Concomitant]
     Active Substance: DOCETAXEL

REACTIONS (1)
  - Myasthenic syndrome [Unknown]
